FAERS Safety Report 8390152-3 (Version None)
Quarter: 2012Q2

REPORT INFORMATION
  Report Type: 
  Country: None (occurrence: None)
  Receive Date: 20120529
  Receipt Date: 20120525
  Transmission Date: 20120825
  Serious: Yes (Other)
  Sender: FDA-Public Use
  Company Number: US-PFIZER INC-2012127292

PATIENT
  Sex: Female

DRUGS (1)
  1. CHANTIX [Suspect]
     Indication: SMOKING CESSATION THERAPY
     Dosage: UNK

REACTIONS (7)
  - FEELING ABNORMAL [None]
  - HEAD INJURY [None]
  - CONCUSSION [None]
  - PAIN [None]
  - EMOTIONAL DISORDER [None]
  - CRYING [None]
  - FALL [None]
